FAERS Safety Report 18724523 (Version 1)
Quarter: 2021Q1

REPORT INFORMATION
  Report Type: Spontaneous
  Country: US (occurrence: US)
  Receive Date: 20210109
  Receipt Date: 20210109
  Transmission Date: 20210419
  Serious: Yes (Hospitalization)
  Sender: FDA-Public Use
  Company Number: None

PATIENT
  Age: 48 Year
  Sex: Female
  Weight: 64.1 kg

DRUGS (2)
  1. DOXIL [Suspect]
     Active Substance: DOXORUBICIN HYDROCHLORIDE
     Dates: end: 20201028
  2. BEVACIZUMAB (RHUMAB VEGF) [Suspect]
     Active Substance: BEVACIZUMAB
     Dates: end: 20201111

REACTIONS (10)
  - Abdominal pain [None]
  - Vomiting [None]
  - Blood bilirubin increased [None]
  - Cholelithiasis [None]
  - Aspartate aminotransferase increased [None]
  - Alanine aminotransferase increased [None]
  - Pancreatitis acute [None]
  - Nausea [None]
  - Pancreatic duct dilatation [None]
  - Biliary dilatation [None]

NARRATIVE: CASE EVENT DATE: 20201125
